FAERS Safety Report 7620109-9 (Version None)
Quarter: 2011Q3

REPORT INFORMATION
  Report Type: 
  Country: None (occurrence: None)
  Receive Date: 20110719
  Receipt Date: 20110714
  Transmission Date: 20111222
  Serious: Yes (Hospitalization)
  Sender: FDA-Public Use
  Company Number: US-BRISTOL-MYERS SQUIBB COMPANY-15903081

PATIENT

DRUGS (1)
  1. COUMADIN [Suspect]
     Indication: ATRIAL FIBRILLATION

REACTIONS (3)
  - INTRACARDIAC THROMBUS [None]
  - INTERNATIONAL NORMALISED RATIO FLUCTUATION [None]
  - CEREBROVASCULAR ACCIDENT [None]
